FAERS Safety Report 8414227-5 (Version None)
Quarter: 2012Q2

REPORT INFORMATION
  Report Type: 
  Country: None (occurrence: None)
  Receive Date: 20120605
  Receipt Date: 20120530
  Transmission Date: 20120825
  Serious: Yes (Hospitalization, Other)
  Sender: FDA-Public Use
  Company Number: US-JNJFOC-20120600515

PATIENT
  Sex: Female
  Weight: 73.94 kg

DRUGS (17)
  1. XARELTO [Suspect]
     Indication: ATRIAL FIBRILLATION
     Route: 048
     Dates: start: 20120514
  2. ASPIRIN [Concomitant]
     Indication: THROMBOSIS PROPHYLAXIS
     Route: 048
     Dates: start: 20050101
  3. POTASSIUM CHLORIDE [Concomitant]
     Indication: BLOOD POTASSIUM DECREASED
     Route: 048
     Dates: start: 20090101
  4. PRAVASTAN [Concomitant]
     Indication: BLOOD CHOLESTEROL
     Route: 048
     Dates: start: 20080101
  5. IMDUR [Concomitant]
     Indication: CARDIAC DISORDER
     Route: 048
  6. TRAMADOL HCL [Suspect]
     Indication: HEADACHE
     Route: 048
     Dates: start: 20120201
  7. XANAX [Concomitant]
     Indication: ANXIETY
     Route: 048
     Dates: start: 20120101
  8. CALCIUM [Concomitant]
     Route: 048
     Dates: start: 20080101
  9. METOPROLOL TARTRATE [Concomitant]
     Indication: CARDIAC DISORDER
     Route: 048
     Dates: start: 20050101
  10. SPIRIVA [Concomitant]
     Indication: CHRONIC OBSTRUCTIVE PULMONARY DISEASE
     Route: 048
     Dates: start: 20120101
  11. DIGOXIN [Concomitant]
     Indication: CARDIAC DISORDER
     Route: 048
     Dates: start: 20120101
  12. ALL OTHER MEDICATION [Concomitant]
     Route: 048
     Dates: start: 20120101
  13. SYMBICORT [Concomitant]
     Indication: CHRONIC OBSTRUCTIVE PULMONARY DISEASE
     Route: 048
     Dates: start: 20110101
  14. LASIX [Concomitant]
     Indication: DIURETIC THERAPY
     Route: 048
     Dates: start: 20120101
  15. ALLOPURINOL [Concomitant]
     Indication: GOUT
     Route: 048
     Dates: start: 20120101
  16. METOLAZONE [Concomitant]
     Indication: DIURETIC THERAPY
     Route: 048
     Dates: start: 20120301
  17. DILANTIN [Concomitant]
     Indication: CONVULSION
     Route: 048
     Dates: start: 20050101

REACTIONS (3)
  - EPISTAXIS [None]
  - ADVERSE EVENT [None]
  - BLOOD POTASSIUM DECREASED [None]
